FAERS Safety Report 26110059 (Version 1)
Quarter: 2025Q4

REPORT INFORMATION
  Report Type: Report from Study
  Country: GB (occurrence: GB)
  Receive Date: 20251201
  Receipt Date: 20251201
  Transmission Date: 20260117
  Serious: Yes (Hospitalization)
  Sender: ABBVIE
  Company Number: GB-ABBVIE-6569942

PATIENT
  Age: 81 Year
  Sex: Male

DRUGS (1)
  1. FOSCARBIDOPA\FOSLEVODOPA [Suspect]
     Active Substance: FOSCARBIDOPA\FOSLEVODOPA
     Indication: Parkinson^s disease
     Dosage: PRODUODOPA 240MG/ML + 12MG/ML PK7
     Route: 058
     Dates: start: 20250519

REACTIONS (2)
  - Fall [Unknown]
  - Hip fracture [Unknown]

NARRATIVE: CASE EVENT DATE: 20251111
